FAERS Safety Report 21634064 (Version 3)
Quarter: 2023Q1

REPORT INFORMATION
  Report Type: Spontaneous
  Country: IN (occurrence: IN)
  Receive Date: 20221123
  Receipt Date: 20230110
  Transmission Date: 20230418
  Serious: Yes (Hospitalization, Other)
  Sender: FDA-Public Use
  Company Number: IN-PFIZER INC-PV202200109457

PATIENT
  Age: 76 Year
  Sex: Female

DRUGS (5)
  1. PALBOCICLIB [Suspect]
     Active Substance: PALBOCICLIB
     Indication: Breast cancer
     Dosage: 125 MG, 1X/DAY
     Route: 048
     Dates: start: 202111
  2. PALBOCICLIB [Suspect]
     Active Substance: PALBOCICLIB
     Dosage: 100 MG, 1X/DAY
     Route: 048
     Dates: start: 2022
  3. LETROZOLE [Concomitant]
     Active Substance: LETROZOLE
  4. SHELCAL OS [Concomitant]
     Dosage: ONCE DAILY
  5. LUMIA 60K [Concomitant]
     Dosage: ONCE A WEEK X 6WEEKS THEN ONCE A MONTH X 6MONTHS

REACTIONS (10)
  - Pulmonary oedema [Unknown]
  - Glomerular filtration rate decreased [Unknown]
  - Neutrophil count decreased [Unknown]
  - Ejection fraction decreased [Unknown]
  - Left ventricular dysfunction [Unknown]
  - Haemoglobin decreased [Unknown]
  - White blood cell count decreased [Unknown]
  - Blood creatinine increased [Unknown]
  - Blood urea increased [Unknown]
  - Blood uric acid increased [Unknown]

NARRATIVE: CASE EVENT DATE: 20221129
